FAERS Safety Report 8585885-X (Version None)
Quarter: 2012Q3

REPORT INFORMATION
  Report Type: 
  Country: None (occurrence: None)
  Receive Date: 20120802
  Receipt Date: 20120802
  Transmission Date: 20120928
  Serious: Yes (Other)
  Sender: FDA-Public Use
  Company Number: None

PATIENT
  Sex: Female

DRUGS (2)
  1. MELOXICAM [Suspect]
     Indication: BACK PAIN
     Dosage: 15MG ONCE A DAY AT BED PO
     Route: 048
     Dates: start: 20120525, end: 20120525
  2. MELOXICAM [Suspect]
     Indication: FALL
     Dosage: 15MG ONCE A DAY AT BED PO
     Route: 048
     Dates: start: 20120525, end: 20120525

REACTIONS (3)
  - TREMOR [None]
  - DIZZINESS [None]
  - BLOOD PRESSURE SYSTOLIC INCREASED [None]
